FAERS Safety Report 20623718 (Version 1)
Quarter: 2022Q1

REPORT INFORMATION
  Report Type: Spontaneous
  Country: JP (occurrence: JP)
  Receive Date: 20220322
  Receipt Date: 20220322
  Transmission Date: 20220423
  Serious: No
  Sender: FDA-Public Use
  Company Number: JP-MSD-M2022-06513

PATIENT
  Age: 62 Year
  Sex: Male

DRUGS (3)
  1. MOLNUPIRAVIR [Suspect]
     Active Substance: MOLNUPIRAVIR
     Indication: COVID-19 treatment
     Dosage: 800 MILLIGRAM
     Route: 048
     Dates: start: 202202, end: 20220216
  2. MOLNUPIRAVIR [Suspect]
     Active Substance: MOLNUPIRAVIR
     Dosage: 800 MILLIGRAM, 3 TIMES PER DAY
     Route: 048
     Dates: start: 20220216, end: 20220216
  3. MOLNUPIRAVIR [Suspect]
     Active Substance: MOLNUPIRAVIR
     Dosage: 800 MILLIGRAM
     Route: 048
     Dates: start: 20220217

REACTIONS (2)
  - Accidental overdose [Unknown]
  - Inappropriate schedule of product administration [Unknown]

NARRATIVE: CASE EVENT DATE: 20220216
